FAERS Safety Report 14477456 (Version 1)
Quarter: 2018Q1

REPORT INFORMATION
  Report Type: Report from Study
  Country: US (occurrence: US)
  Receive Date: 20180201
  Receipt Date: 20180201
  Transmission Date: 20180509
  Serious: No
  Sender: FDA-Public Use
  Company Number: US-EXELIXIS-CABO-17010886

PATIENT
  Age: 79 Year
  Sex: Female

DRUGS (1)
  1. CABOMETYX [Suspect]
     Active Substance: CABOZANTINIB S-MALATE
     Indication: BLADDER CANCER
     Dosage: 60 MG, QD
     Route: 048
     Dates: start: 20170920

REACTIONS (3)
  - Muscular weakness [Unknown]
  - Off label use [Unknown]
  - Balance disorder [Unknown]

NARRATIVE: CASE EVENT DATE: 20170920
